FAERS Safety Report 24091167 (Version 1)
Quarter: 2024Q3

REPORT INFORMATION
  Report Type: Spontaneous
  Country: IT (occurrence: IT)
  Receive Date: 20240715
  Receipt Date: 20240715
  Transmission Date: 20241016
  Serious: Yes (Hospitalization, Other)
  Sender: SANOFI AVENTIS
  Company Number: None

PATIENT
  Age: 59 Year
  Sex: Male

DRUGS (4)
  1. ZOLPIDEM TARTRATE [Suspect]
     Active Substance: ZOLPIDEM TARTRATE
     Dosage: UNK (INTAKE FOR PURPOSES OF SELF-HARM: 40 TABS OF 10 MG)
     Route: 048
     Dates: start: 20240620, end: 20240620
  2. AMLODIPINE [Suspect]
     Active Substance: AMLODIPINE BESYLATE
     Dosage: UNK (INTAKE FOR PURPOSES OF SELF-HARM: 10 TABS OF 10 MG)
     Route: 048
     Dates: start: 20240620, end: 20240620
  3. FLURAZEPAM HYDROCHLORIDE [Suspect]
     Active Substance: FLURAZEPAM HYDROCHLORIDE
     Dosage: INTAKE FOR PURPOSES OF SELF-HARM: 15 TABS OF 30 MG
     Route: 048
     Dates: start: 20240620, end: 20240620
  4. VALIUM [Suspect]
     Active Substance: DIAZEPAM
     Dosage: UNK (INTAKE FOR PURPOSES OF SELF-HARM: 10 VIALS OF DROPS 5MG/ML)
     Route: 048
     Dates: start: 20240620, end: 20240620

REACTIONS (4)
  - Intentional self-injury [Recovered/Resolved]
  - Bradypnoea [Recovered/Resolved]
  - Cognitive disorder [Recovered/Resolved]
  - Drug abuse [Recovered/Resolved]

NARRATIVE: CASE EVENT DATE: 20240620
